FAERS Safety Report 15922447 (Version 1)
Quarter: 2019Q1

REPORT INFORMATION
  Report Type: Spontaneous
  Country: US (occurrence: US)
  Receive Date: 20190205
  Receipt Date: 20190205
  Transmission Date: 20190417
  Serious: Yes (Death)
  Sender: FDA-Public Use
  Company Number: None

PATIENT
  Sex: Female

DRUGS (13)
  1. ROPINOROLE [Concomitant]
     Active Substance: ROPINIROLE
     Dates: start: 20190203, end: 20190204
  2. ESBRIET [Suspect]
     Active Substance: PIRFENIDONE
     Indication: IDIOPATHIC PULMONARY FIBROSIS
     Route: 048
     Dates: start: 20180824, end: 20190201
  3. PANTOPRAZOLE [Concomitant]
     Active Substance: PANTOPRAZOLE
     Dates: start: 20190116, end: 20190201
  4. GABAPENTIN. [Concomitant]
     Active Substance: GABAPENTIN
     Dates: start: 20181115, end: 20190201
  5. CARTIA [Concomitant]
     Dates: start: 20180529, end: 20190201
  6. DIGOXIN. [Concomitant]
     Active Substance: DIGOXIN
     Dates: start: 20181115, end: 20190201
  7. WARFARIN [Concomitant]
     Active Substance: WARFARIN
     Dates: start: 20180212, end: 20190201
  8. METFORMIN [Concomitant]
     Active Substance: METFORMIN HYDROCHLORIDE
     Dates: start: 20180904, end: 20190201
  9. THEOPHYLLINE [Concomitant]
     Active Substance: THEOPHYLLINE ANHYDROUS
     Dates: start: 20180905, end: 20190201
  10. AZITHROMYCIN ANHYDROUS. [Concomitant]
     Active Substance: AZITHROMYCIN ANHYDROUS
     Dates: start: 20180905, end: 20190201
  11. SYNTHROID [Concomitant]
     Active Substance: LEVOTHYROXINE SODIUM
     Dates: start: 20180912, end: 20190201
  12. XALATAN [Concomitant]
     Active Substance: LATANOPROST
     Dates: start: 20180811, end: 20190201
  13. LASIX [Concomitant]
     Active Substance: FUROSEMIDE
     Dates: start: 20180726, end: 20190201

REACTIONS (1)
  - Hospitalisation [None]
